FAERS Safety Report 20337003 (Version 2)
Quarter: 2022Q1

REPORT INFORMATION
  Report Type: Spontaneous
  Country: US (occurrence: US)
  Receive Date: 20220114
  Receipt Date: 20220224
  Transmission Date: 20220423
  Serious: No
  Sender: FDA-Public Use
  Company Number: US-PFIZER INC-202200028957

PATIENT
  Age: 6 Decade
  Sex: Male
  Weight: 9.53 kg

DRUGS (1)
  1. SERTRALINE HYDROCHLORIDE [Suspect]
     Active Substance: SERTRALINE HYDROCHLORIDE
     Indication: Generalised anxiety disorder
     Dosage: 100 MG
     Route: 048

REACTIONS (6)
  - Feeling hot [Unknown]
  - Pruritus [Unknown]
  - Rash macular [Unknown]
  - Allergic reaction to excipient [Unknown]
  - Urticaria [Unknown]
  - Rash [Unknown]
